FAERS Safety Report 10427134 (Version 1)
Quarter: 2014Q3

REPORT INFORMATION
  Report Type: Spontaneous
  Country: US (occurrence: None)
  Receive Date: 20140902
  Receipt Date: 20140902
  Transmission Date: 20150326
  Serious: No
  Sender: FDA-Public Use
  Company Number: None

PATIENT
  Age: 49 Year
  Sex: Female
  Weight: 95.26 kg

DRUGS (1)
  1. ARM + HAMMER COMPLETE CARE PLUS WHITENING /BAKING SODA+ PEROXIDE [Suspect]
     Active Substance: SODIUM FLUORIDE
     Indication: DENTAL CARE
     Dosage: TOOTHBRUSH?DAILY?(PO) MOUTH
     Route: 048
     Dates: start: 20131226, end: 20140401

REACTIONS (7)
  - Oral pain [None]
  - Dry mouth [None]
  - Cheilitis [None]
  - Alopecia [None]
  - Stress [None]
  - Oral discomfort [None]
  - Aphasia [None]

NARRATIVE: CASE EVENT DATE: 20140101
